FAERS Safety Report 14625652 (Version 1)
Quarter: 2018Q1

REPORT INFORMATION
  Report Type: Spontaneous
  Country: US (occurrence: US)
  Receive Date: 20180312
  Receipt Date: 20180312
  Transmission Date: 20180509
  Serious: No
  Sender: FDA-Public Use
  Company Number: US-GLAXOSMITHKLINE-US2018040138

PATIENT
  Age: 54 Year
  Sex: Male

DRUGS (1)
  1. BREO ELLIPTA [Suspect]
     Active Substance: FLUTICASONE FUROATE\VILANTEROL TRIFENATATE
     Indication: ASTHMA
     Dosage: 1 PUFF(S), 1D
     Dates: start: 201609

REACTIONS (9)
  - Intentional product misuse [Unknown]
  - Intentional underdose [Unknown]
  - Respiratory tract congestion [Unknown]
  - Product storage error [Unknown]
  - Cough [Unknown]
  - Dry mouth [Unknown]
  - Dry throat [Unknown]
  - Drug dose omission [Unknown]
  - Product quality issue [Unknown]

NARRATIVE: CASE EVENT DATE: 20180308
